FAERS Safety Report 13231239 (Version 2)
Quarter: 2018Q1

REPORT INFORMATION
  Report Type: Report from Study
  Country: None (occurrence: US)
  Receive Date: 20170214
  Receipt Date: 20180212
  Transmission Date: 20180508
  Serious: No
  Sender: FDA-Public Use
  Company Number: US-AMAG PHARMACEUTICALS, INC.-AMAG201700410

PATIENT

DRUGS (1)
  1. MAKENA [Suspect]
     Active Substance: HYDROXYPROGESTERONE CAPROATE
     Indication: PRODUCT USED FOR UNKNOWN INDICATION
     Dosage: UNK
     Route: 065
     Dates: start: 20161017

REACTIONS (8)
  - Injection site induration [Recovered/Resolved]
  - Nausea [Unknown]
  - Heart rate increased [Unknown]
  - Diarrhoea [Unknown]
  - Uterine contractions during pregnancy [Recovered/Resolved]
  - Blood pressure increased [Unknown]
  - Dyspnoea [Unknown]
  - Muscle spasms [Unknown]
